FAERS Safety Report 8332887-4 (Version None)
Quarter: 2012Q2

REPORT INFORMATION
  Report Type: 
  Country: None (occurrence: None)
  Receive Date: 20120503
  Receipt Date: 20120425
  Transmission Date: 20120825
  Serious: Yes (Other)
  Sender: FDA-Public Use
  Company Number: JP-VERTEX PHARMACEUTICALS INC.-AE-2012-006172

PATIENT
  Age: 64 Year
  Sex: Male

DRUGS (8)
  1. REBETOL [Concomitant]
     Indication: HEPATITIS C
     Route: 048
     Dates: start: 20120220, end: 20120305
  2. PEGINTERFERON ALFA-2B [Concomitant]
     Indication: HEPATITIS C
     Route: 051
     Dates: start: 20120220
  3. LOXONIN [Concomitant]
     Route: 048
     Dates: start: 20120220
  4. REBETOL [Concomitant]
     Route: 048
     Dates: start: 20120306
  5. GLUFAST [Concomitant]
     Route: 048
  6. FAMOTIDINE [Concomitant]
     Route: 048
     Dates: start: 20120220
  7. TELAVIC (TELAPREVIR) [Suspect]
     Indication: HEPATITIS C
     Route: 048
     Dates: start: 20120220
  8. VOGLIBOSE [Concomitant]
     Route: 048

REACTIONS (1)
  - ERYTHEMA MULTIFORME [None]
